FAERS Safety Report 10607703 (Version 4)
Quarter: 2020Q3

REPORT INFORMATION
  Report Type: Report from Study
  Country: AR (occurrence: AR)
  Receive Date: 20141125
  Receipt Date: 20200312
  Transmission Date: 20201105
  Serious: Yes (Other)
  Sender: FDA-Public Use
  Company Number: PHHY2014AR154114

PATIENT
  Sex: Male

DRUGS (8)
  1. SUPRACAM [Concomitant]
     Indication: HERNIA
     Dosage: UNK
     Route: 065
  2. DIOVAN [Suspect]
     Active Substance: VALSARTAN
     Dosage: 80 MG, BID
     Route: 065
     Dates: start: 20191219
  3. EXFORGE [Suspect]
     Active Substance: AMLODIPINE BESYLATE\VALSARTAN
     Indication: HYPERTENSION
     Dosage: 1 DF, QD
     Route: 048
     Dates: start: 2010
  4. DIOVAN [Suspect]
     Active Substance: VALSARTAN
     Indication: PRODUCT USED FOR UNKNOWN INDICATION
     Dosage: 160 MG, QD
     Route: 065
     Dates: start: 201912
  5. LERCADIP [Concomitant]
     Active Substance: LERCANIDIPINE HYDROCHLORIDE
     Indication: PRODUCT USED FOR UNKNOWN INDICATION
     Dosage: 1 UNK, QD
     Route: 065
  6. DIUREX [Concomitant]
     Indication: HYPERTENSION
     Dosage: 25 MG
     Route: 065
  7. NEBIVOLOL. [Concomitant]
     Active Substance: NEBIVOLOL
     Indication: PRODUCT USED FOR UNKNOWN INDICATION
     Dosage: UNK
     Route: 065
  8. SUPRACAM [Concomitant]
     Indication: HIATUS HERNIA

REACTIONS (10)
  - Ventricular fibrillation [Unknown]
  - Dyspnoea [Recovering/Resolving]
  - Atrial fibrillation [Recovered/Resolved]
  - Bronchitis chronic [Recovering/Resolving]
  - Chronic obstructive pulmonary disease [Recovering/Resolving]
  - Muscle spasms [Recovering/Resolving]
  - Respiratory disorder [Recovering/Resolving]
  - Asthma [Recovering/Resolving]
  - Peripheral swelling [Recovered/Resolved]
  - Panic attack [Recovering/Resolving]

NARRATIVE: CASE EVENT DATE: 2011
